FAERS Safety Report 17804396 (Version 2)
Quarter: 2020Q2

REPORT INFORMATION
  Report Type: Report from Study
  Country: NL (occurrence: NL)
  Receive Date: 20200519
  Receipt Date: 20200611
  Transmission Date: 20200714
  Serious: Yes (Other)
  Sender: FDA-Public Use
  Company Number: NL-AMGEN-NLDSL2020078729

PATIENT
  Age: 60 Year
  Sex: Male

DRUGS (18)
  1. FENTANYL. [Concomitant]
     Active Substance: FENTANYL
     Dosage: 200 MICROGRAM, 6D1T WHEN NEEDED
  2. SIMVASTATINE [Concomitant]
     Active Substance: SIMVASTATIN
     Dosage: 40 MILLIGRAM, QD
  3. XGEVA [Suspect]
     Active Substance: DENOSUMAB
     Indication: PROPHYLAXIS
     Dosage: 120 MILLIGRAM (1.7ML), Q4WK
     Route: 065
     Dates: start: 20200506
  4. ACETYLSALICYLIC ACID [Concomitant]
     Active Substance: ASPIRIN
     Dosage: 80 MILLIGRAM, QD
  5. LEUPRORELINE [Concomitant]
     Active Substance: LEUPROLIDE
     Dosage: 45 MILLIGRAM, QD
  6. NIFEDIPINE. [Concomitant]
     Active Substance: NIFEDIPINE
     Dosage: 30 MILLIGRAM 2D1T
  7. ETORICOXIB. [Concomitant]
     Active Substance: ETORICOXIB
     Dosage: 60 MILLIGRAM, QD
  8. LOSARTAN. [Concomitant]
     Active Substance: LOSARTAN
     Dosage: 100 MILLIGRAM, QD
  9. BECLOMET [BECLOMETASONE DIPROPIONATE] [Concomitant]
     Dosage: 87/5/9UG/DO 120DO INH 2D2I
  10. FENTANYL. [Concomitant]
     Active Substance: FENTANYL
     Dosage: 100 MICROGRAM 6D1T WHEN NEEDED
  11. DEXAMETHASON [DEXAMETHASONE] [Concomitant]
     Active Substance: DEXAMETHASONE
     Dosage: 4 MILLIGRAM
  12. PANTOPRAZOL [PANTOPRAZOLE] [Concomitant]
     Active Substance: PANTOPRAZOLE
     Dosage: 40 MILLIGRAM, QD
  13. PREDNISOLON [PREDNISOLONE] [Concomitant]
     Active Substance: PREDNISOLONE
     Dosage: 5 MILLIGRAM, BID
  14. ETORICOXIB. [Concomitant]
     Active Substance: ETORICOXIB
     Dosage: 30 MILLIGRAM, QD
  15. FENTANYL. [Concomitant]
     Active Substance: FENTANYL
     Dosage: 50UG/HR (GENERIC+DUROGESIC) 1DD1PL
  16. PAROXETINE. [Concomitant]
     Active Substance: PAROXETINE
     Dosage: 20 MILLIGRAM, BID
  17. CALCIUM CARBONATE;COLECALCIFEROL [Concomitant]
     Active Substance: CALCIUM CARBONATE\CHOLECALCIFEROL
     Dosage: 2,5G/880IE (1000MG CA),1000 MILLIGRAM, QD
  18. FENTANYL. [Concomitant]
     Active Substance: FENTANYL
     Dosage: 25UG/HOUR (GENERIC+DUROGESIC) 1DD1PL

REACTIONS (1)
  - Metastases to spine [Unknown]

NARRATIVE: CASE EVENT DATE: 20200506
